FAERS Safety Report 9115989 (Version 1)
Quarter: 2013Q1

REPORT INFORMATION
  Report Type: Spontaneous
  Country: US (occurrence: US)
  Receive Date: 20130225
  Receipt Date: 20130225
  Transmission Date: 20140127
  Serious: Yes (Other)
  Sender: FDA-Public Use
  Company Number: US-ELI_LILLY_AND_COMPANY-US201302005852

PATIENT
  Age: 65 Year
  Sex: Female

DRUGS (5)
  1. PROZAC [Suspect]
     Dosage: 1 DF, UNKNOWN
     Dates: start: 1995
  2. PROZAC [Suspect]
     Dosage: 10 MG, UNKNOWN
  3. PROZAC [Suspect]
     Dosage: 20 MG, UNKNOWN
  4. CYMBALTA [Suspect]
     Dosage: 1 DF, UNKNOWN
  5. SERTRALINE [Concomitant]

REACTIONS (2)
  - Suicidal ideation [Recovered/Resolved]
  - Breast cancer [Unknown]
